FAERS Safety Report 8306994-6 (Version None)
Quarter: 2012Q2

REPORT INFORMATION
  Report Type: 
  Country: None (occurrence: None)
  Receive Date: 20120424
  Receipt Date: 20120415
  Transmission Date: 20120825
  Serious: Yes (Other)
  Sender: FDA-Public Use
  Company Number: PHHY2012MX032033

PATIENT
  Sex: Female

DRUGS (3)
  1. EXFORGE HCT [Suspect]
     Indication: HYPERTENSION
     Dosage: 1 TABLET (160/5/12.5 MG) PER DAY
     Dates: start: 20120301
  2. EXFORGE HCT [Suspect]
     Dosage: 2 TABLETS (160/5/12.5 MG) PER DAY
     Dates: start: 20120401
  3. METFORMIN HCL [Concomitant]
     Dosage: 2 TABLETS PER DAY

REACTIONS (2)
  - EYE HAEMORRHAGE [None]
  - HYPERTENSION [None]
